FAERS Safety Report 14806443 (Version 1)
Quarter: 2018Q2

REPORT INFORMATION
  Report Type: Spontaneous
  Country: FR (occurrence: FR)
  Receive Date: 20180425
  Receipt Date: 20180425
  Transmission Date: 20180711
  Serious: Yes (Other)
  Sender: FDA-Public Use
  Company Number: FR-BAYER-2018-073465

PATIENT
  Age: 33 Year
  Sex: Female
  Weight: 50 kg

DRUGS (2)
  1. MIRENA [Suspect]
     Active Substance: LEVONORGESTREL
     Indication: CONTRACEPTION
  2. MIRENA [Suspect]
     Active Substance: LEVONORGESTREL
     Indication: CONTRACEPTION
     Dosage: 20 MCG/24HR, CONT
     Route: 015
     Dates: start: 2007, end: 20180326

REACTIONS (4)
  - Abdominal distension [Recovered/Resolved]
  - Vertigo [Recovering/Resolving]
  - Headache [Recovering/Resolving]
  - Pelvic pain [Recovered/Resolved]

NARRATIVE: CASE EVENT DATE: 2016
